FAERS Safety Report 18607053 (Version 8)
Quarter: 2021Q1

REPORT INFORMATION
  Report Type: Report from Study
  Country: CA (occurrence: CA)
  Receive Date: 20201211
  Receipt Date: 20210330
  Transmission Date: 20210419
  Serious: Yes (Other)
  Sender: FDA-Public Use
  Company Number: CA-TAKEDA-2018TUS023447

PATIENT
  Age: 47 Year
  Sex: Male

DRUGS (19)
  1. VEDOLIZUMAB [Suspect]
     Active Substance: VEDOLIZUMAB
     Dosage: 300 MILLIGRAM
     Route: 042
  2. PREDNISONE. [Suspect]
     Active Substance: PREDNISONE
     Indication: INSOMNIA
     Dosage: 20 MILLIGRAM
     Route: 065
  3. LOPERAMIDE [Concomitant]
     Active Substance: LOPERAMIDE
     Dosage: UNK
  4. VEDOLIZUMAB [Suspect]
     Active Substance: VEDOLIZUMAB
     Dosage: 300 MILLIGRAM
     Route: 042
  5. HYDROCHLOROTHIAZIDE. [Concomitant]
     Active Substance: HYDROCHLOROTHIAZIDE
     Dosage: UNK
  6. VALSARTAN. [Concomitant]
     Active Substance: VALSARTAN
     Dosage: UNK
  7. LAVEMENT PHOSPHATE [Concomitant]
     Dosage: UNK
  8. PREDNISONE. [Suspect]
     Active Substance: PREDNISONE
     Dosage: 15 MILLIGRAM
     Route: 065
  9. VEDOLIZUMAB [Suspect]
     Active Substance: VEDOLIZUMAB
     Indication: COLITIS ULCERATIVE
     Dosage: 300 MILLIGRAM
     Route: 042
     Dates: start: 20180418
  10. VEDOLIZUMAB [Suspect]
     Active Substance: VEDOLIZUMAB
     Dosage: 300 MILLIGRAM, Q4WEEKS
     Route: 042
     Dates: start: 20201210
  11. VEDOLIZUMAB [Suspect]
     Active Substance: VEDOLIZUMAB
     Dosage: 300 MILLIGRAM, Q4WEEKS
     Route: 042
  12. AERIUS                             /01009701/ [Concomitant]
     Active Substance: EBASTINE
     Dosage: UNK
  13. VEDOLIZUMAB [Suspect]
     Active Substance: VEDOLIZUMAB
     Dosage: 300 MILLIGRAM
     Route: 042
  14. VEDOLIZUMAB [Suspect]
     Active Substance: VEDOLIZUMAB
     Dosage: 300 MILLIGRAM, Q4WEEKS
     Route: 042
     Dates: end: 20210202
  15. MEZAVANT [Concomitant]
     Active Substance: MESALAMINE
     Dosage: 1200 MILLIGRAM
  16. AZATHIOPRINE. [Concomitant]
     Active Substance: AZATHIOPRINE
     Dosage: UNK
  17. CALCIUM 500+D [Concomitant]
     Active Substance: CALCIUM\VITAMIN D
     Dosage: UNK
  18. OXAZEPAM. [Concomitant]
     Active Substance: OXAZEPAM
     Dosage: UNK
  19. SALOFALK                           /00000301/ [Concomitant]
     Active Substance: AMINOSALICYLIC ACID
     Dosage: UNK

REACTIONS (15)
  - Sleep disorder [Unknown]
  - Neck pain [Unknown]
  - Off label use [Unknown]
  - Colitis ulcerative [Unknown]
  - Abdominal pain [Recovered/Resolved]
  - Pain [Unknown]
  - Insomnia [Unknown]
  - Chest pain [Unknown]
  - Fatigue [Unknown]
  - Impatience [Unknown]
  - Chest discomfort [Unknown]
  - Haematochezia [Unknown]
  - Abdominal discomfort [Unknown]
  - Headache [Unknown]
  - Drug ineffective [Unknown]

NARRATIVE: CASE EVENT DATE: 2018
